FAERS Safety Report 24359255 (Version 1)
Quarter: 2024Q3

REPORT INFORMATION
  Report Type: Report from Study
  Country: CN (occurrence: CN)
  Receive Date: 20240924
  Receipt Date: 20240924
  Transmission Date: 20241017
  Serious: No
  Sender: Unknown Manufacturer
  Company Number: CN-CSTONE PHARMACEUTICALS (SUZHOU) CO., LTD.-2024CN00967

PATIENT

DRUGS (3)
  1. PRALSETINIB [Suspect]
     Active Substance: PRALSETINIB
     Indication: Product used for unknown indication
     Dosage: 400 MILLIGRAM
     Route: 048
     Dates: start: 20240320
  2. PRALSETINIB [Suspect]
     Active Substance: PRALSETINIB
     Dosage: 300 MILLIGRAM
     Route: 048
  3. PRALSETINIB [Suspect]
     Active Substance: PRALSETINIB
     Dosage: 200 MILLIGRAM
     Route: 048

REACTIONS (8)
  - Pain [Recovering/Resolving]
  - Swelling of eyelid [Recovering/Resolving]
  - Pleural effusion [Recovering/Resolving]
  - Hepatic function abnormal [Recovering/Resolving]
  - Blood pressure increased [Recovering/Resolving]
  - Asthenia [Recovering/Resolving]
  - Pyrexia [Recovering/Resolving]
  - Blood creatinine increased [Recovering/Resolving]
